FAERS Safety Report 17100415 (Version 1)
Quarter: 2019Q4

REPORT INFORMATION
  Report Type: Spontaneous
  Country: FR (occurrence: FR)
  Receive Date: 20191202
  Receipt Date: 20191202
  Transmission Date: 20200122
  Serious: Yes (Hospitalization, Other)
  Sender: FDA-Public Use
  Company Number: FR-MYLANLABS-2019M1115862

PATIENT
  Age: 59 Year
  Sex: Female
  Weight: 45 kg

DRUGS (2)
  1. CISPLATIN. [Suspect]
     Active Substance: CISPLATIN
     Indication: CHOLANGIOCARCINOMA
     Dosage: 60 MILLIGRAM/SQ. METER, Q3W
     Route: 041
     Dates: start: 20120708, end: 20121015
  2. GEMCITABINE. [Suspect]
     Active Substance: GEMCITABINE
     Indication: CHOLANGIOCARCINOMA
     Dosage: 2000 MILLIGRAM/SQ. METER, Q3W
     Route: 041
     Dates: start: 20120708, end: 20121206

REACTIONS (3)
  - Anaemia [Recovered/Resolved]
  - Neurotoxicity [Not Recovered/Not Resolved]
  - Nephropathy toxic [Not Recovered/Not Resolved]

NARRATIVE: CASE EVENT DATE: 20120807
